FAERS Safety Report 7922901-X (Version None)
Quarter: 2011Q4

REPORT INFORMATION
  Report Type: 
  Country: None (occurrence: None)
  Receive Date: 20111117
  Receipt Date: 20111024
  Transmission Date: 20120403
  Serious: No
  Sender: FDA-Public Use
  Company Number: US-ALLERGAN-1113997US

PATIENT
  Age: 53 Year
  Sex: Female

DRUGS (1)
  1. LASTACAFT [Suspect]
     Indication: HYPERSENSITIVITY
     Dosage: 2 GTT, TWICE
     Route: 047
     Dates: start: 20111009

REACTIONS (4)
  - EYE SWELLING [None]
  - EYELIDS PRURITUS [None]
  - EYELID PAIN [None]
  - SCLERAL HYPERAEMIA [None]
